FAERS Safety Report 7274407-1 (Version None)
Quarter: 2011Q1

REPORT INFORMATION
  Report Type: 
  Country: None (occurrence: None)
  Receive Date: 20110204
  Receipt Date: 20110201
  Transmission Date: 20110831
  Serious: No
  Sender: FDA-Public Use
  Company Number: US-JNJFOC-20110200998

PATIENT
  Sex: Female
  Weight: 70.31 kg

DRUGS (3)
  1. DURAGESIC-50 [Suspect]
     Route: 062
  2. DURAGESIC-50 [Suspect]
     Indication: NECK PAIN
     Route: 062
  3. VICODIN [Concomitant]
     Indication: BREAKTHROUGH PAIN
     Dosage: 5-500 MG/AS NEEDED
     Route: 048

REACTIONS (5)
  - INADEQUATE ANALGESIA [None]
  - INCORRECT DOSE ADMINISTERED [None]
  - HYPERHIDROSIS [None]
  - WRONG TECHNIQUE IN DRUG USAGE PROCESS [None]
  - SOMNOLENCE [None]
